FAERS Safety Report 5840278-0 (Version None)
Quarter: 2008Q3

REPORT INFORMATION
  Report Type: 
  Country: None (occurrence: None)
  Receive Date: 20080811
  Receipt Date: 20080806
  Transmission Date: 20090109
  Serious: Yes (Other)
  Sender: FDA-Public Use
  Company Number: DE-AVENTIS-200812129DE

PATIENT
  Age: 67 Year
  Sex: Female

DRUGS (4)
  1. ARAVA [Suspect]
     Route: 048
     Dates: start: 20070101
  2. ARAVA [Suspect]
     Route: 048
     Dates: start: 20070101
  3. CORTISONE [Concomitant]
     Dosage: DOSE: NOT REPORTED
  4. PANTOZOL                           /01263202/ [Concomitant]
     Dosage: DOSE: NOT REPORTED

REACTIONS (5)
  - BLISTER [None]
  - ERYTHEMA [None]
  - HEPATITIS [None]
  - ORAL DISORDER [None]
  - SWELLING [None]
